FAERS Safety Report 11317106 (Version 2)
Quarter: 2016Q2

REPORT INFORMATION
  Report Type: Report from Study
  Country: BR (occurrence: BR)
  Receive Date: 20150728
  Receipt Date: 20160413
  Transmission Date: 20160815
  Serious: Yes (Hospitalization, Other)
  Sender: FDA-Public Use
  Company Number: BR-ABBVIE-15K-020-1432470-00

PATIENT
  Age: 59 Year
  Sex: Female
  Weight: 58 kg

DRUGS (2)
  1. RIVOTRIL [Concomitant]
     Active Substance: CLONAZEPAM
     Indication: SLEEP DISORDER THERAPY
     Dosage: A QUARTER OF TABLET
     Route: 048
  2. HUMIRA [Suspect]
     Active Substance: ADALIMUMAB
     Indication: PSORIATIC ARTHROPATHY
     Route: 058
     Dates: start: 20100601

REACTIONS (11)
  - Lipoma [Recovered/Resolved]
  - Pain in extremity [Recovered/Resolved]
  - Cyst [Recovered/Resolved]
  - Peripheral swelling [Not Recovered/Not Resolved]
  - Diverticulitis [Recovered/Resolved]
  - Diverticulitis [Unknown]
  - Treatment noncompliance [Unknown]
  - Emotional disorder [Recovered/Resolved]
  - Pain in extremity [Not Recovered/Not Resolved]
  - Joint swelling [Not Recovered/Not Resolved]
  - Synovial cyst [Not Recovered/Not Resolved]

NARRATIVE: CASE EVENT DATE: 2012
